FAERS Safety Report 25469133 (Version 2)
Quarter: 2025Q2

REPORT INFORMATION
  Report Type: Report from Study
  Country: AT (occurrence: AT)
  Receive Date: 20250623
  Receipt Date: 20250626
  Transmission Date: 20250716
  Serious: Yes (Hospitalization)
  Sender: MYLAN
  Company Number: AT-CELLTRION INC.-2025AT017598

PATIENT
  Age: 58 Year
  Sex: Female
  Weight: 52.9 kg

DRUGS (32)
  1. LENALIDOMIDE [Suspect]
     Active Substance: LENALIDOMIDE
     Indication: Diffuse large B-cell lymphoma
     Dates: start: 20220603, end: 20220817
  2. LENALIDOMIDE [Suspect]
     Active Substance: LENALIDOMIDE
  3. RITUXIMAB [Suspect]
     Active Substance: RITUXIMAB
     Indication: Diffuse large B-cell lymphoma
     Dosage: 375 MILLIGRAM/SQ. METER EVERY 3 WEEKS
     Dates: start: 20220603
  4. RITUXIMAB [Suspect]
     Active Substance: RITUXIMAB
     Dosage: 375 MILLIGRAM/SQ. METER EVERY 3 WEEKS
     Dates: start: 20220809
  5. TAFASITAMAB [Suspect]
     Active Substance: TAFASITAMAB
     Indication: Diffuse large B-cell lymphoma
     Dosage: 12 MILLIGRAM/KILOGRAM IV EVERY WEEK (~REGIMEN #1; BLINDED, INFORMATION WITHHELD)
     Dates: start: 20220603, end: 20220817
  6. TAFASITAMAB [Suspect]
     Active Substance: TAFASITAMAB
     Dosage: 12 MILLIGRAM/KILOGRAM IV EVERY WEEK
     Dates: start: 20220809
  7. TAFASITAMAB [Suspect]
     Active Substance: TAFASITAMAB
     Dosage: 12 MILLIGRAM/KILOGRAM IV EVERY WEEK (REGIMEN #2; BLINDED, INFORMATION WITHHELD (REGIMEN #2; BLINDED, INFORMATION WITHHELD)
     Dates: start: 20220824
  8. CYCLOPHOSPHAMIDE [Suspect]
     Active Substance: CYCLOPHOSPHAMIDE
     Indication: Diffuse large B-cell lymphoma
     Dosage: 750 MILLIGRAM/SQ. METER EVERY 3 WEEKS
     Dates: start: 20220603
  9. CYCLOPHOSPHAMIDE [Suspect]
     Active Substance: CYCLOPHOSPHAMIDE
     Dosage: 750 MILLIGRAM/SQ. METER EVERY 3 WEEKS
     Dates: start: 20220809
  10. DOXORUBICIN [Suspect]
     Active Substance: DOXORUBICIN
     Indication: Diffuse large B-cell lymphoma
     Dosage: 50 MILLIGRAM/SQ. METER EVERY 2 WEEKS (REGIMEN #1R-CHOP)
     Dates: start: 20220603
  11. DOXORUBICIN [Suspect]
     Active Substance: DOXORUBICIN
     Dosage: 50 MILLIGRAM/SQ. METER EVERY 2 WEEKS
     Dates: start: 20220809
  12. VINCRISTINE [Suspect]
     Active Substance: VINCRISTINE
     Indication: Diffuse large B-cell lymphoma
     Dosage: 1.3 MILLIGRAM/SQ. METER EVERY 3 WEEKS (REGIMEN #1R-CHOP)
     Dates: start: 20220603
  13. VINCRISTINE [Suspect]
     Active Substance: VINCRISTINE
     Dosage: 1.3 MILLIGRAM/SQ. METER EVERY 3 WEEKS
     Dates: start: 20220809
  14. PREDNISOLONE [Suspect]
     Active Substance: PREDNISOLONE
     Indication: Diffuse large B-cell lymphoma
     Dosage: 100 MILLIGRAM EVERY 3 WEEKS
     Dates: start: 20220603
  15. PREDNISOLONE [Suspect]
     Active Substance: PREDNISOLONE
     Dosage: 100 MILLIGRAM EVERY 3 WEEKS
     Dates: start: 20220809
  16. PANTOPRAZOLE SODIUM [Concomitant]
     Active Substance: PANTOPRAZOLE SODIUM
  17. ASPIRIN [Concomitant]
     Active Substance: ASPIRIN
  18. Lidaprim [Concomitant]
  19. VALACYCLOVIR HYDROCHLORIDE [Concomitant]
     Active Substance: VALACYCLOVIR HYDROCHLORIDE
  20. Passedan [Concomitant]
  21. Paspertin [Concomitant]
  22. ACETAMINOPHEN [Concomitant]
     Active Substance: ACETAMINOPHEN
  23. ONDANSETRON HYDROCHLORIDE [Concomitant]
     Active Substance: ONDANSETRON HYDROCHLORIDE
  24. Laxogol [Concomitant]
  25. IMODIUM [Concomitant]
     Active Substance: LOPERAMIDE HYDROCHLORIDE
  26. DEXIBUPROFEN [Concomitant]
     Active Substance: DEXIBUPROFEN
  27. ZYPREXA [Concomitant]
     Active Substance: OLANZAPINE
  28. BISOPROLOL FUMARATE [Concomitant]
     Active Substance: BISOPROLOL FUMARATE
  29. Glandomed [Concomitant]
  30. ERYTHROPOIETIN [Concomitant]
     Active Substance: ERYTHROPOIETIN
  31. TRAZODONE HYDROCHLORIDE [Concomitant]
     Active Substance: TRAZODONE HYDROCHLORIDE
  32. MAGNESIUM [Concomitant]
     Active Substance: MAGNESIUM

REACTIONS (4)
  - Neutropenia [Recovered/Resolved]
  - Infection [Recovered/Resolved]
  - Bacterial infection [Recovered/Resolved]
  - Product use issue [Unknown]

NARRATIVE: CASE EVENT DATE: 20220817
